FAERS Safety Report 13143786 (Version 1)
Quarter: 2017Q1

REPORT INFORMATION
  Report Type: Spontaneous
  Country: US (occurrence: US)
  Receive Date: 20170124
  Receipt Date: 20170124
  Transmission Date: 20170428
  Serious: No
  Sender: FDA-Public Use
  Company Number: US-BAUSCH-BL-2016-030130

PATIENT
  Age: 18 Year
  Sex: Female
  Weight: 72.64 kg

DRUGS (3)
  1. ALAWAY [Suspect]
     Active Substance: KETOTIFEN FUMARATE
     Indication: EYE PRURITUS
  2. PATADAY 0.2% [Concomitant]
     Indication: HYPERSENSITIVITY
     Route: 047
     Dates: start: 201505
  3. ALAWAY [Suspect]
     Active Substance: KETOTIFEN FUMARATE
     Indication: DRY EYE
     Dosage: BOTH EYES
     Route: 047
     Dates: start: 2014

REACTIONS (2)
  - Eye irritation [Recovered/Resolved]
  - Eye pain [Recovered/Resolved]

NARRATIVE: CASE EVENT DATE: 20161121
